FAERS Safety Report 7306042-0 (Version None)
Quarter: 2011Q1

REPORT INFORMATION
  Report Type: 
  Country: None (occurrence: None)
  Receive Date: 20110222
  Receipt Date: 20110217
  Transmission Date: 20110831
  Serious: Yes (Hospitalization)
  Sender: FDA-Public Use
  Company Number: GB-PFIZER INC-2011036031

PATIENT
  Age: 69 Year
  Sex: Male

DRUGS (17)
  1. DILTIAZEM [Concomitant]
  2. RANITIDINE [Concomitant]
  3. SALBUTAMOL [Concomitant]
     Route: 055
  4. DIPYRIDAMOLE [Concomitant]
  5. VITAMIN B COMPLEX [Concomitant]
  6. FOLIC ACID [Concomitant]
  7. METFORMIN [Concomitant]
  8. PARACETAMOL [Concomitant]
  9. SERETIDE [Concomitant]
     Route: 055
  10. ACETYLSALICYLIC ACID [Concomitant]
  11. PERINDOPRIL [Concomitant]
  12. THIAMINE [Concomitant]
  13. FUROSEMIDE [Concomitant]
  14. ISOSORBIDE MONONITRATE [Concomitant]
  15. ATORVASTATIN CALCIUM [Suspect]
     Dosage: 40 MG, UNK
     Route: 048
     Dates: end: 20110207
  16. GABAPENTIN [Concomitant]
  17. PRIMIDONE [Concomitant]

REACTIONS (4)
  - MUSCULAR WEAKNESS [None]
  - TREMOR [None]
  - MYALGIA [None]
  - MYOPATHY [None]
